FAERS Safety Report 6966844-7 (Version None)
Quarter: 2010Q3

REPORT INFORMATION
  Report Type: 
  Country: None (occurrence: None)
  Receive Date: 20100906
  Receipt Date: 20100824
  Transmission Date: 20110219
  Serious: Yes (Hospitalization)
  Sender: FDA-Public Use
  Company Number: PHHY2010CN20312

PATIENT
  Sex: Female
  Weight: 63 kg

DRUGS (5)
  1. STI571/CGP57148B T35717+TAB [Suspect]
     Indication: CHRONIC MYELOID LEUKAEMIA
     Dosage: 400 MG, QD
     Route: 048
     Dates: start: 20090422
  2. STI571/CGP57148B T35717+TAB [Suspect]
     Dosage: 300 MG, QD
     Route: 048
  3. STI571/CGP57148B T35717+TAB [Suspect]
     Dosage: 400 MG, QD
     Route: 048
     Dates: end: 20100217
  4. STI571/CGP57148B T35717+TAB [Suspect]
     Dosage: UNK
     Dates: end: 20100513
  5. NEUPOGEN [Concomitant]

REACTIONS (3)
  - AGRANULOCYTOSIS [None]
  - DRUG INTOLERANCE [None]
  - WHITE BLOOD CELL COUNT DECREASED [None]
